FAERS Safety Report 4738925-X (Version None)
Quarter: 2005Q3

REPORT INFORMATION
  Report Type: 
  Country: None (occurrence: None)
  Receive Date: 20050801
  Receipt Date: 20050509
  Transmission Date: 20060218
  Serious: Yes (Hospitalization)
  Sender: FDA-Public Use
  Company Number: 213321

PATIENT
  Age: 62 Week
  Sex: Female
  Weight: 8 kg

DRUGS (5)
  1. RITUXAN [Suspect]
     Indication: EVAN'S SYNDROME
     Dosage: 5 ML, INTRAVENOUS
     Route: 042
     Dates: start: 20041126, end: 20050318
  2. ACETAMINOPHEN [Concomitant]
  3. HYDROCORTISONE [Concomitant]
  4. BENADRYL [Concomitant]
  5. ZANTAC [Concomitant]

REACTIONS (1)
  - INFUSION RELATED REACTION [None]
